FAERS Safety Report 8080500-6 (Version None)
Quarter: 2012Q1

REPORT INFORMATION
  Report Type: 
  Country: None (occurrence: None)
  Receive Date: 20120130
  Receipt Date: 20120127
  Transmission Date: 20120608
  Serious: Yes (Other)
  Sender: FDA-Public Use
  Company Number: US-PFIZER INC-2012023380

PATIENT
  Sex: Female
  Weight: 70.3 kg

DRUGS (2)
  1. CHANTIX [Suspect]
     Indication: SMOKING CESSATION THERAPY
     Dosage: 0.5 MG, DAILY
     Route: 048
     Dates: start: 20111210, end: 20120106
  2. FEMARA [Concomitant]
     Indication: BREAST CANCER FEMALE
     Dosage: 2.5 MG, DAILY

REACTIONS (3)
  - AMNESIA [None]
  - FATIGUE [None]
  - AGGRESSION [None]
